FAERS Safety Report 24727099 (Version 1)
Quarter: 2024Q4

REPORT INFORMATION
  Report Type: Spontaneous
  Country: US (occurrence: US)
  Receive Date: 20241212
  Receipt Date: 20241212
  Transmission Date: 20250114
  Serious: No
  Sender: Harrow Health
  Company Number: US-IMP-2024001097

PATIENT
  Age: 64 Year
  Sex: Female

DRUGS (1)
  1. ILEVRO [Suspect]
     Active Substance: NEPAFENAC
     Indication: Eye swelling
     Dosage: I USED IT EVERY DAY UNTIL I SAW MY DOCTOR THEN HE TOLD ME TO?DO IT EVERY OTHER DAY
     Route: 047
     Dates: start: 20241102

REACTIONS (4)
  - Liquid product physical issue [Unknown]
  - Product prescribing issue [Unknown]
  - Intentional dose omission [Unknown]
  - Product use in unapproved indication [Unknown]
